FAERS Safety Report 5854455-6 (Version None)
Quarter: 2008Q3

REPORT INFORMATION
  Report Type: 
  Country: None (occurrence: None)
  Receive Date: 20080822
  Receipt Date: 20080812
  Transmission Date: 20090109
  Serious: Yes (Other)
  Sender: FDA-Public Use
  Company Number: US-PFIZER INC-2008052484

PATIENT
  Sex: Female
  Weight: 102.5 kg

DRUGS (9)
  1. LYRICA [Suspect]
     Indication: FIBROMYALGIA
     Dates: start: 20080506, end: 20080607
  2. PLAVIX [Concomitant]
  3. VYTORIN [Concomitant]
  4. GLIPIZIDE [Concomitant]
  5. METFORMIN [Concomitant]
  6. PREVACID [Concomitant]
  7. IRON [Concomitant]
  8. ACTOS [Concomitant]
  9. BENICAR HCT [Concomitant]

REACTIONS (7)
  - CONVULSION [None]
  - DYSARTHRIA [None]
  - GAIT DISTURBANCE [None]
  - HYPOTENSION [None]
  - INTENTIONAL DRUG MISUSE [None]
  - SYNCOPE [None]
  - TACHYCARDIA [None]
